FAERS Safety Report 7288462-6 (Version None)
Quarter: 2011Q1

REPORT INFORMATION
  Report Type: 
  Country: None (occurrence: None)
  Receive Date: 20110211
  Receipt Date: 20110202
  Transmission Date: 20110831
  Serious: Yes (Hospitalization)
  Sender: FDA-Public Use
  Company Number: B0697447A

PATIENT
  Age: 68 Year
  Sex: Male

DRUGS (3)
  1. CORTANCYL [Suspect]
     Indication: MULTIPLE MYELOMA
     Dosage: 115MG PER DAY
     Route: 048
     Dates: start: 20100409, end: 20100523
  2. THALIDOMIDE [Suspect]
     Indication: MULTIPLE MYELOMA
     Dosage: 200MG PER DAY
     Route: 048
     Dates: start: 20100409, end: 20101216
  3. ALKERAN [Suspect]
     Indication: MULTIPLE MYELOMA
     Dosage: 14MG PER DAY
     Route: 042
     Dates: start: 20100409, end: 20100523

REACTIONS (6)
  - RALES [None]
  - ATELECTASIS [None]
  - PULMONARY EMBOLISM [None]
  - OEDEMA PERIPHERAL [None]
  - DEEP VEIN THROMBOSIS [None]
  - DYSPNOEA [None]
